FAERS Safety Report 6174911-3 (Version None)
Quarter: 2009Q2

REPORT INFORMATION
  Report Type: 
  Country: None (occurrence: None)
  Receive Date: 20090430
  Receipt Date: 20081002
  Transmission Date: 20091009
  Serious: No
  Sender: FDA-Public Use
  Company Number: US-ASTRAZENECA-2008UW21535

PATIENT
  Sex: Female

DRUGS (1)
  1. NEXIUM [Suspect]
     Indication: GASTRITIS
     Dosage: OPENED NEXIUM 40 MG CAPSULE, PUT ON A SALAD AND BITE INTO BEADS
     Route: 048

REACTIONS (6)
  - DYSGEUSIA [None]
  - HYPOAESTHESIA [None]
  - PANIC ATTACK [None]
  - TACHYCARDIA [None]
  - THROAT IRRITATION [None]
  - WRONG TECHNIQUE IN DRUG USAGE PROCESS [None]
